FAERS Safety Report 9167860 (Version 1)
Quarter: 2013Q1

REPORT INFORMATION
  Report Type: Spontaneous
  Country: IT (occurrence: None)
  Receive Date: 20130307
  Receipt Date: 20130307
  Transmission Date: 20140127
  Serious: Yes (Hospitalization)
  Sender: FDA-Public Use
  Company Number: AUR-APL-2013-02038

PATIENT
  Age: 92 Year
  Sex: Female

DRUGS (6)
  1. AMOXICILLIN (AMOXICILLIN) [Suspect]
     Indication: OROPHARYNGEAL PAIN
     Dosage: 1 DOSE UNIT/TOTAL, ORAL
     Route: 048
     Dates: start: 20130217, end: 20130217
  2. LASIX (FUROSEMIDE) [Concomitant]
  3. TRENTAL (PENTOXIFYLLINE) [Concomitant]
  4. TIKLID (TIKLID (TICLOPIDINE HYDROCHLORIDE) [Concomitant]
  5. BIVIS [Concomitant]
  6. ANTRA (OMEPRAZOLE) [Concomitant]

REACTIONS (4)
  - Dysphagia [None]
  - Dyspnoea [None]
  - Tongue oedema [None]
  - Documented hypersensitivity to administered drug [None]
